FAERS Safety Report 4533335-2 (Version None)
Quarter: 2005Q1

REPORT INFORMATION
  Report Type: 
  Country: None (occurrence: None)
  Receive Date: 20041206
  Receipt Date: 20040903
  Transmission Date: 20050727
  Serious: No
  Sender: FDA-Public Use
  Company Number: USA040876787

PATIENT
  Age: 50 Year
  Sex: Female
  Weight: 59 kg

DRUGS (3)
  1. CYMBALTA [Suspect]
     Indication: DEPRESSION
     Dosage: 30 MG/1 DAY
     Dates: start: 20040827
  2. KLONOPIN [Concomitant]
  3. WELLBUTRIN [Concomitant]

REACTIONS (5)
  - ANXIETY [None]
  - DEPRESSION [None]
  - DIARRHOEA [None]
  - NAUSEA [None]
  - PANIC ATTACK [None]
